FAERS Safety Report 26117250 (Version 1)
Quarter: 2025Q4

REPORT INFORMATION
  Report Type: Report from Study
  Country: US (occurrence: US)
  Receive Date: 20251203
  Receipt Date: 20251203
  Transmission Date: 20260117
  Serious: Yes (Hospitalization)
  Sender: ALEXION PHARMACEUTICALS
  Company Number: US-AstraZeneca-CH-01002352A

PATIENT
  Age: 90 Year
  Sex: Male
  Weight: 83.007 kg

DRUGS (12)
  1. CALQUENCE [Suspect]
     Active Substance: ACALABRUTINIB
     Indication: B-cell lymphoma
     Dates: start: 20250827
  2. ANTACID [Concomitant]
     Active Substance: ALUMINUM HYDROXIDE\CALCIUM CARBONATE\DIMETHICONE\MAGNESIUM HYDROXIDE
     Route: 065
  3. CALCIUM [Concomitant]
     Active Substance: CALCIUM
     Route: 065
  4. DOXYCYCLINE [Concomitant]
     Active Substance: DOXYCYCLINE
     Route: 065
  5. Hyclate [Concomitant]
     Route: 065
  6. PROCHLORPERAZINE [Concomitant]
     Active Substance: PROCHLORPERAZINE
     Route: 065
  7. ALLOPURINOL [Concomitant]
     Active Substance: ALLOPURINOL
     Route: 065
  8. ELIQUIS [Concomitant]
     Active Substance: APIXABAN
     Route: 065
  9. POLYETHYLENE GLYCOL [Concomitant]
     Active Substance: POLYETHYLENE GLYCOL
     Route: 065
  10. LACTOBACILLUS ACIDOPHILUS [Concomitant]
     Active Substance: LACTOBACILLUS ACIDOPHILUS
     Route: 065
  11. PROTONIX [Concomitant]
     Active Substance: PANTOPRAZOLE SODIUM
     Route: 065
  12. TAMSULOSIN [Concomitant]
     Active Substance: TAMSULOSIN
     Route: 065

REACTIONS (2)
  - COVID-19 [Recovering/Resolving]
  - Fall [Recovering/Resolving]
